FAERS Safety Report 9263556 (Version 1)
Quarter: 2013Q2

REPORT INFORMATION
  Report Type: Spontaneous
  Country: US (occurrence: US)
  Receive Date: 20130430
  Receipt Date: 20130430
  Transmission Date: 20140414
  Serious: Yes (Hospitalization, Other)
  Sender: FDA-Public Use
  Company Number: US-BAYER-2013-051980

PATIENT
  Age: 30 Year
  Sex: Female
  Weight: 99.77 kg

DRUGS (9)
  1. YASMIN [Suspect]
  2. SULFACETAMIDE [Concomitant]
     Dosage: 10 %, UNK
     Dates: start: 20110613
  3. PERCOCET [Concomitant]
     Dosage: 5-325 MG, UNK
     Route: 048
     Dates: start: 20110613
  4. ZOFRAN [Concomitant]
     Dosage: 4 MG, UNK
     Route: 048
     Dates: start: 20110613
  5. NORCO [Concomitant]
     Indication: PROCEDURAL PAIN
     Dosage: 10-325 MG, UNK
     Route: 048
     Dates: start: 20110613, end: 20110624
  6. PROAIR HFA [Concomitant]
     Indication: ASTHMA EXERCISE INDUCED
     Dosage: UNK
     Dates: start: 20110613, end: 20110624
  7. LIDOCAINE [Concomitant]
     Indication: VAGINISMUS
     Dosage: 2 %, UNK
     Route: 061
     Dates: start: 20110613, end: 20110624
  8. ESTRADIOL [Concomitant]
     Dosage: UNK
     Dates: start: 20110506
  9. PREMARIN [Concomitant]

REACTIONS (2)
  - Pulmonary embolism [None]
  - Deep vein thrombosis [None]
